FAERS Safety Report 9137121 (Version 1)
Quarter: 2013Q1

REPORT INFORMATION
  Report Type: Spontaneous
  Country: US (occurrence: US)
  Receive Date: 20130219
  Receipt Date: 20130219
  Transmission Date: 20140127
  Serious: No
  Sender: FDA-Public Use
  Company Number: US-BRISTOL-MYERS SQUIBB COMPANY-16803587

PATIENT
  Age: 59 Year
  Sex: Female
  Weight: 74.37 kg

DRUGS (7)
  1. ABATACEPT SUBQ INJECTION 125MG/ML [Suspect]
     Indication: RHEUMATOID ARTHRITIS
     Dosage: LAST INF:30JUN2012
     Route: 058
  2. TYLENOL [Concomitant]
  3. TRAMADOL [Concomitant]
  4. MULTIVITAMIN [Concomitant]
  5. LIDODERM [Concomitant]
  6. METHOTREXATE [Concomitant]
  7. EVISTA [Concomitant]

REACTIONS (2)
  - Muscle spasms [Unknown]
  - Pain in extremity [Not Recovered/Not Resolved]
